FAERS Safety Report 9342903 (Version 3)
Quarter: 2013Q3

REPORT INFORMATION
  Report Type: Report from Study
  Country: JP (occurrence: JP)
  Receive Date: 20130611
  Receipt Date: 20130909
  Transmission Date: 20140515
  Serious: No
  Sender: FDA-Public Use
  Company Number: JP-ABBOTT-13P-087-1101499-00

PATIENT
  Age: 73 Year
  Sex: Female
  Weight: 55.2 kg

DRUGS (8)
  1. HUMIRA [Suspect]
     Indication: RHEUMATOID ARTHRITIS
     Route: 058
     Dates: start: 20120413, end: 20121123
  2. METHOTREXATE [Concomitant]
     Indication: RHEUMATOID ARTHRITIS
     Dosage: 6 MG/WEEK
     Dates: end: 20121017
  3. METHOTREXATE [Concomitant]
     Dosage: 4 MG/WEEK
     Dates: start: 20121017, end: 20121128
  4. FOLIC ACID [Concomitant]
     Indication: ADVERSE DRUG REACTION
     Route: 048
     Dates: end: 20121128
  5. FOLIC ACID [Concomitant]
     Indication: PROPHYLAXIS
  6. LOXOPROFEN SODIUM HYDRATE [Concomitant]
     Indication: RHEUMATOID ARTHRITIS
     Route: 048
  7. TEPRENONE [Concomitant]
     Indication: PROPHYLAXIS AGAINST GASTROINTESTINAL ULCER
     Route: 048
  8. ALFACALCIDOL [Concomitant]
     Indication: OSTEOPOROSIS PROPHYLAXIS
     Dosage: 1 MCG DAILY
     Route: 048

REACTIONS (4)
  - Enterocolitis [Recovered/Resolved]
  - Dehydration [Recovered/Resolved]
  - Infection [Recovered/Resolved]
  - Gait disturbance [Unknown]
